FAERS Safety Report 8242831-6 (Version None)
Quarter: 2012Q1

REPORT INFORMATION
  Report Type: 
  Country: None (occurrence: None)
  Receive Date: 20120329
  Receipt Date: 20120321
  Transmission Date: 20120608
  Serious: Yes (Other)
  Sender: FDA-Public Use
  Company Number: US-BAYER-2011-114344

PATIENT
  Age: 38 Year
  Sex: Female

DRUGS (10)
  1. IBUPROFEN [Concomitant]
     Dosage: UNK
     Route: 048
     Dates: start: 20100305, end: 20110103
  2. FLAGYL [Concomitant]
     Dosage: 500 MG, QD
     Route: 048
  3. DROSPIRENONE AND ETHINYL ESTRADIOL [Suspect]
     Indication: ACNE
     Dosage: UNK
     Dates: start: 20091102, end: 20091227
  4. YAZ [Suspect]
     Indication: ACNE
     Dosage: UNK
     Dates: start: 20090805, end: 20100719
  5. DROSPIRENONE AND ETHINYL ESTRADIOL [Suspect]
     Indication: CONTRACEPTION
     Dosage: UNK
     Dates: start: 20090713
  6. XANAX [Concomitant]
     Indication: ANXIETY
     Dosage: 0.25 MG, PRN
     Route: 048
  7. KEFLEX [Concomitant]
     Dosage: 500 MG, UNK
     Route: 048
  8. MULTI-VITAMIN [Concomitant]
     Route: 048
  9. YAZ [Suspect]
     Indication: CONTRACEPTION
     Dosage: UNK
     Dates: start: 20080128, end: 20090610
  10. PRILOSEC [Concomitant]
     Dosage: 20 MG, QD
     Route: 048

REACTIONS (8)
  - BILIARY DYSKINESIA [None]
  - CHOLECYSTITIS CHRONIC [None]
  - ABDOMINAL DISCOMFORT [None]
  - PAIN [None]
  - HEPATIC STEATOSIS [None]
  - GALLBLADDER INJURY [None]
  - ABDOMINAL DISTENSION [None]
  - MASS [None]
